FAERS Safety Report 4650694-0 (Version None)
Quarter: 2005Q2

REPORT INFORMATION
  Report Type: 
  Country: None (occurrence: None)
  Receive Date: 20050429
  Receipt Date: 20050429
  Transmission Date: 20051028
  Serious: Yes (Life-Threatening, Disabling)
  Sender: FDA-Public Use
  Company Number: None

PATIENT
  Age: 26 Year
  Sex: Male
  Weight: 68.0396 kg

DRUGS (1)
  1. ZOLOFT [Suspect]
     Indication: DEPRESSION
     Dosage: 1 X DAILY   ORAL
     Route: 048
     Dates: start: 20030301, end: 20050428

REACTIONS (6)
  - BLOOD GLUCOSE ABNORMAL [None]
  - DRUG DEPENDENCE [None]
  - HYPERCHOLESTEROLAEMIA [None]
  - MENTAL STATUS CHANGES [None]
  - SPEECH DISORDER [None]
  - WEIGHT DECREASED [None]
